FAERS Safety Report 11269991 (Version 1)
Quarter: 2015Q3

REPORT INFORMATION
  Report Type: Spontaneous
  Country: US (occurrence: US)
  Receive Date: 20150714
  Receipt Date: 20150714
  Transmission Date: 20151125
  Serious: Yes (Other)
  Sender: FDA-Public Use
  Company Number: US-PFIZER INC-2015229346

PATIENT
  Sex: Female

DRUGS (1)
  1. RELPAX [Suspect]
     Active Substance: ELETRIPTAN HYDROBROMIDE

REACTIONS (8)
  - Fractured coccyx [Unknown]
  - Fall [Unknown]
  - Cervical vertebral fracture [Unknown]
  - Lower limb fracture [Unknown]
  - Hand fracture [Unknown]
  - Speech disorder [Unknown]
  - Tooth fracture [Unknown]
  - Rib fracture [Unknown]
